FAERS Safety Report 9416771 (Version 1)
Quarter: 2013Q3

REPORT INFORMATION
  Report Type: Spontaneous
  Country: DE (occurrence: None)
  Receive Date: 20130722
  Receipt Date: 20130722
  Transmission Date: 20140515
  Serious: Yes (Disabling)
  Sender: FDA-Public Use
  Company Number: 2013P1012216

PATIENT
  Age: 52 Year
  Sex: Female

DRUGS (2)
  1. ZOLPIDEM [Suspect]
     Dates: start: 201202
  2. LORAZEPAM [Concomitant]

REACTIONS (15)
  - Drug intolerance [None]
  - Impaired work ability [None]
  - Dependence [None]
  - Weight decreased [None]
  - Polydipsia [None]
  - Asthenia [None]
  - Drug abuse [None]
  - Decreased appetite [None]
  - Suicidal ideation [None]
  - Hyponatraemia [None]
  - Hyperkalaemia [None]
  - Drug withdrawal syndrome [None]
  - Convulsion [None]
  - Depression [None]
  - Insomnia [None]
